FAERS Safety Report 4325491-6 (Version None)
Quarter: 2004Q1

REPORT INFORMATION
  Report Type: 
  Country: None (occurrence: None)
  Receive Date: 20040324
  Receipt Date: 20040309
  Transmission Date: 20041129
  Serious: Yes (Hospitalization, Other)
  Sender: FDA-Public Use
  Company Number: USA040361565

PATIENT
  Age: 61 Year
  Sex: Female

DRUGS (4)
  1. EVISTA [Suspect]
     Indication: OSTEOPOROSIS
     Dates: start: 19990101
  2. DILANTIN [Concomitant]
  3. NEURONTIN [Concomitant]
  4. ALLEGRA [Concomitant]

REACTIONS (2)
  - INTESTINAL OBSTRUCTION [None]
  - PNEUMONIA [None]
